FAERS Safety Report 24741189 (Version 1)
Quarter: 2024Q4

REPORT INFORMATION
  Report Type: Spontaneous
  Country: KR (occurrence: KR)
  Receive Date: 20241217
  Receipt Date: 20241217
  Transmission Date: 20250114
  Serious: Yes (Other)
  Sender: ASTELLAS
  Company Number: KR-ASTELLAS-2024-AER-025077

PATIENT
  Age: 69 Year
  Sex: Female

DRUGS (9)
  1. TACROLIMUS [Suspect]
     Active Substance: TACROLIMUS
     Indication: Rheumatoid arthritis
     Route: 065
     Dates: start: 201305, end: 201503
  2. TACROLIMUS [Suspect]
     Active Substance: TACROLIMUS
     Indication: Interstitial lung disease
     Route: 065
     Dates: start: 201510, end: 201906
  3. TACROLIMUS [Suspect]
     Active Substance: TACROLIMUS
     Route: 065
     Dates: end: 201912
  4. TACROLIMUS [Suspect]
     Active Substance: TACROLIMUS
     Route: 065
     Dates: start: 202006
  5. ABATACEPT [Concomitant]
     Active Substance: ABATACEPT
     Indication: Rheumatoid arthritis
     Route: 065
     Dates: start: 201510, end: 201906
  6. ABATACEPT [Concomitant]
     Active Substance: ABATACEPT
     Indication: Interstitial lung disease
     Route: 065
     Dates: end: 201912
  7. ABATACEPT [Concomitant]
     Active Substance: ABATACEPT
     Route: 065
     Dates: start: 202006, end: 202106
  8. AZACITIDINE [Concomitant]
     Active Substance: AZACITIDINE
     Indication: Rheumatoid arthritis
     Route: 065
     Dates: start: 202006
  9. AZACITIDINE [Concomitant]
     Active Substance: AZACITIDINE
     Indication: Interstitial lung disease

REACTIONS (4)
  - Rheumatoid arthritis [Unknown]
  - Pneumonia [Unknown]
  - Pneumocystis jirovecii pneumonia [Unknown]
  - Depression [Unknown]

NARRATIVE: CASE EVENT DATE: 20200601
